FAERS Safety Report 25618818 (Version 1)
Quarter: 2025Q3

REPORT INFORMATION
  Report Type: Spontaneous
  Country: US (occurrence: None)
  Receive Date: 20250729
  Receipt Date: 20250729
  Transmission Date: 20251021
  Serious: Yes (unspecified)
  Sender: FDA-CTU
  Company Number: None

PATIENT
  Sex: Male
  Weight: 83.25 kg

DRUGS (1)
  1. HERBALS\MITRAGYNINE [Suspect]
     Active Substance: HERBALS\MITRAGYNINE

REACTIONS (10)
  - Alopecia [None]
  - Blood testosterone decreased [None]
  - Dyschezia [None]
  - Gallbladder disorder [None]
  - Renal disorder [None]
  - Dependence [None]
  - Partner stress [None]
  - Loss of employment [None]
  - Withdrawal syndrome [None]
  - Self esteem decreased [None]
